FAERS Safety Report 20778494 (Version 1)
Quarter: 2022Q2

REPORT INFORMATION
  Report Type: Spontaneous
  Country: US (occurrence: US)
  Receive Date: 20220503
  Receipt Date: 20220503
  Transmission Date: 20220721
  Serious: No
  Sender: FDA-Public Use
  Company Number: US-AMNEAL PHARMACEUTICALS-2021-AMRX-03468

PATIENT
  Age: 56 Year
  Sex: Female

DRUGS (2)
  1. VIGABATRIN [Suspect]
     Active Substance: VIGABATRIN
     Indication: Illness
     Dosage: 1500 MILLIGRAM, 2 /DAY
     Route: 048
     Dates: end: 20210813
  2. SABRIL [Concomitant]
     Active Substance: VIGABATRIN
     Indication: Illness
     Dosage: UNK
     Route: 065

REACTIONS (1)
  - Tachyphrenia [Unknown]

NARRATIVE: CASE EVENT DATE: 20210813
